FAERS Safety Report 20204840 (Version 1)
Quarter: 2021Q4

REPORT INFORMATION
  Report Type: Report from Study
  Country: US (occurrence: US)
  Receive Date: 20211220
  Receipt Date: 20211220
  Transmission Date: 20220303
  Serious: Yes (Other)
  Sender: FDA-Public Use
  Company Number: US-SANOFI-00897332

PATIENT
  Age: 62 Year
  Sex: Female

DRUGS (1)
  1. DUPILUMAB [Suspect]
     Active Substance: DUPILUMAB
     Indication: Nasal polyps
     Dosage: 300 MG, QOW
     Route: 058
     Dates: start: 202004

REACTIONS (8)
  - Hepatic cancer [Unknown]
  - Injection site rash [Unknown]
  - Injection site erythema [Unknown]
  - Injection site pruritus [Unknown]
  - Condition aggravated [Unknown]
  - Injection site dryness [Unknown]
  - Injection site discolouration [Unknown]
  - Product use in unapproved indication [Unknown]

NARRATIVE: CASE EVENT DATE: 20200401
